FAERS Safety Report 6753044-9 (Version None)
Quarter: 2010Q2

REPORT INFORMATION
  Report Type: 
  Country: None (occurrence: None)
  Receive Date: 20100602
  Receipt Date: 20100602
  Transmission Date: 20101027
  Serious: Yes (Other)
  Sender: FDA-Public Use
  Company Number: None

PATIENT
  Age: 65 Year
  Sex: Female
  Weight: 98.4306 kg

DRUGS (1)
  1. NIASPAN [Suspect]
     Indication: BLOOD TRIGLYCERIDES ABNORMAL
     Dosage: 1 TABLET 1 PER NIGHT
     Dates: start: 20100513, end: 20100501

REACTIONS (2)
  - FEELING HOT [None]
  - RASH ERYTHEMATOUS [None]
